FAERS Safety Report 9435214 (Version 3)
Quarter: 2014Q3

REPORT INFORMATION
  Report Type: Spontaneous
  Country: US (occurrence: US)
  Receive Date: 20130801
  Receipt Date: 20140815
  Transmission Date: 20150326
  Serious: Yes (Hospitalization, Other)
  Sender: FDA-Public Use
  Company Number: US-009507513-1307USA016022

PATIENT
  Sex: Female
  Weight: 70.75 kg

DRUGS (1)
  1. NUVARING [Suspect]
     Active Substance: ETHINYL ESTRADIOL\ETONOGESTREL
     Indication: CONTRACEPTION
     Dosage: UNK
     Route: 067
     Dates: start: 200801, end: 20110817

REACTIONS (13)
  - Migraine with aura [Unknown]
  - Nausea [Recovered/Resolved]
  - Anxiety [Unknown]
  - Vaginal discharge [Unknown]
  - Asthma [Unknown]
  - Constipation [Unknown]
  - Eczema [Unknown]
  - Hypersensitivity [Unknown]
  - Vomiting [Recovered/Resolved]
  - Heart rate irregular [Unknown]
  - Lobar pneumonia [Unknown]
  - Pulmonary embolism [Unknown]
  - Palpitations [Unknown]

NARRATIVE: CASE EVENT DATE: 20110802
